FAERS Safety Report 11857146 (Version 3)
Quarter: 2016Q1

REPORT INFORMATION
  Report Type: Spontaneous
  Country: US (occurrence: US)
  Receive Date: 20151221
  Receipt Date: 20160229
  Transmission Date: 20160526
  Serious: No
  Sender: FDA-Public Use
  Company Number: US-PFIZER INC-2015380487

PATIENT
  Age: 74 Year
  Sex: Female

DRUGS (9)
  1. CARVEDILOL. [Concomitant]
     Active Substance: CARVEDILOL
     Dosage: 2 DF, DAILY
  2. KLOR-CON M20 [Concomitant]
     Active Substance: POTASSIUM CHLORIDE
     Dosage: UNK
  3. FUROSEMIDE. [Concomitant]
     Active Substance: FUROSEMIDE
     Dosage: UNK (2 TWICE A WEEK)
  4. VITAMIN D2 [Concomitant]
     Active Substance: ERGOCALCIFEROL
     Dosage: UNK, WEEKLY
  5. CALCIUM CITRATE [Concomitant]
     Active Substance: CALCIUM CITRATE
  6. IBRANCE [Suspect]
     Active Substance: PALBOCICLIB
     Dosage: 100 MG, CYCLIC (1 CAPSULE BY MOUTH ONCE DAILY. FOR 3 WEEKS THEN 1 WEEK OFF)
     Route: 048
     Dates: start: 20160215
  7. EXEMESTANE. [Suspect]
     Active Substance: EXEMESTANE
     Indication: NEOPLASM MALIGNANT
     Dosage: 25 MG, 1X/DAY
     Dates: start: 20151202
  8. IBRANCE [Suspect]
     Active Substance: PALBOCICLIB
     Indication: BREAST CANCER METASTATIC
     Dosage: 125 MG, CYCLIC (ONCE DAILY, 28 DAY SUPPLY, QUANTITY: 21, REFILL 12 TIMES)
     Dates: start: 20151202
  9. VITAMIN D3 [Concomitant]
     Active Substance: CHOLECALCIFEROL
     Dosage: 1 DF, 1X/DAY

REACTIONS (2)
  - Malaise [Not Recovered/Not Resolved]
  - Product use issue [Unknown]

NARRATIVE: CASE EVENT DATE: 20151202
